FAERS Safety Report 14558635 (Version 1)
Quarter: 2018Q1

REPORT INFORMATION
  Report Type: Spontaneous
  Country: US (occurrence: US)
  Receive Date: 20180221
  Receipt Date: 20180221
  Transmission Date: 20180509
  Serious: Yes (Other)
  Sender: FDA-Public Use
  Company Number: US-TEVA-2018-US-860033

PATIENT
  Sex: Female

DRUGS (1)
  1. MIRTAZAPINE. [Suspect]
     Active Substance: MIRTAZAPINE
     Indication: SLEEP DISORDER

REACTIONS (5)
  - Blood cholesterol increased [Unknown]
  - Liver disorder [Unknown]
  - Product use in unapproved indication [Unknown]
  - Liver function test abnormal [Unknown]
  - Renal disorder [Unknown]
